FAERS Safety Report 6245467-1 (Version None)
Quarter: 2009Q2

REPORT INFORMATION
  Report Type: 
  Country: None (occurrence: None)
  Receive Date: 20090625
  Receipt Date: 20090615
  Transmission Date: 20091009
  Serious: Yes (Other)
  Sender: FDA-Public Use
  Company Number: PHHY2009BR24180

PATIENT
  Age: 76 Year
  Sex: Female
  Weight: 80 kg

DRUGS (9)
  1. DIOVAN HCT [Suspect]
     Indication: HYPERTENSION
     Dosage: 1 TABLET DAILY
     Route: 048
  2. CARVEDILOL [Concomitant]
     Indication: CARDIAC DISORDER
     Dosage: 1 TABLET DAILY
     Route: 048
     Dates: start: 20050101
  3. LASIX [Concomitant]
     Indication: CARDIAC DISORDER
     Dosage: 1 TABLET DAILY
     Route: 048
     Dates: start: 20050101
  4. ALDACTONE [Concomitant]
     Indication: CARDIAC DISORDER
     Dosage: 1 TABLET DAILY
     Route: 048
     Dates: start: 20050101
  5. AAS [Concomitant]
     Indication: CARDIAC DISORDER
     Dosage: 1 TABLET DAILY
     Route: 048
  6. SIMVASTATIN [Concomitant]
     Dosage: 1 TABLET DAILY
     Route: 048
  7. GLUCOSAMINE SULFATE W/CHONDROITIN [Concomitant]
     Indication: OSTEOARTHRITIS
     Dosage: 1 SACHET DAILY
     Route: 048
     Dates: start: 20070601
  8. GLUCOSAMINE SULFATE W/CHONDROITIN [Concomitant]
     Indication: ARTHRITIS
  9. AMITRIL [Concomitant]
     Indication: MUSCLE RELAXANT THERAPY
     Dosage: 1 TABLET AT NIGHT
     Route: 048
     Dates: start: 20090601

REACTIONS (4)
  - BLOOD PRESSURE INCREASED [None]
  - HEART RATE ABNORMAL [None]
  - PERIPHERAL COLDNESS [None]
  - POOR PERIPHERAL CIRCULATION [None]
